FAERS Safety Report 7125112-3 (Version None)
Quarter: 2010Q4

REPORT INFORMATION
  Report Type: 
  Country: None (occurrence: None)
  Receive Date: 20101129
  Receipt Date: 20101019
  Transmission Date: 20110411
  Serious: Yes (Other)
  Sender: FDA-Public Use
  Company Number: US-AMGEN-USASP2010000965

PATIENT

DRUGS (2)
  1. ENBREL [Suspect]
     Indication: RHEUMATOID ARTHRITIS
     Dates: start: 20100924
  2. ENBREL [Suspect]
     Indication: PSORIASIS

REACTIONS (10)
  - CONTUSION [None]
  - DRY SKIN [None]
  - ERYTHEMA [None]
  - EYE HAEMORRHAGE [None]
  - FUNGAL SKIN INFECTION [None]
  - HEADACHE [None]
  - INJECTION SITE REACTION [None]
  - NAIL DISCOLOURATION [None]
  - NAIL HYPERTROPHY [None]
  - ONYCHOLYSIS [None]
